FAERS Safety Report 25501009 (Version 1)
Quarter: 2025Q3

REPORT INFORMATION
  Report Type: Spontaneous
  Country: CN (occurrence: CN)
  Receive Date: 20250701
  Receipt Date: 20250701
  Transmission Date: 20251020
  Serious: Yes (Hospitalization)
  Sender: ELI LILLY AND COMPANY
  Company Number: CN-ELI_LILLY_AND_COMPANY-CN202506024173

PATIENT
  Age: 76 Year
  Sex: Male
  Weight: 75 kg

DRUGS (3)
  1. HUMALOG [Suspect]
     Active Substance: INSULIN LISPRO
     Indication: Type 2 diabetes mellitus
     Dosage: 8 INTERNATIONAL UNIT, DAILY
     Route: 058
     Dates: start: 20250606, end: 20250621
  2. AMLODIPINE BESYLATE [Suspect]
     Active Substance: AMLODIPINE BESYLATE
     Indication: Hypertension
     Dosage: 5 MG, DAILY
     Route: 048
     Dates: start: 20250606, end: 20250621
  3. ABIRATERONE ACETATE [Suspect]
     Active Substance: ABIRATERONE ACETATE
     Indication: Prostate cancer
     Dosage: 1 G, DAILY
     Route: 048
     Dates: start: 20250606, end: 20250624

REACTIONS (1)
  - Blood lactic acid increased [Unknown]

NARRATIVE: CASE EVENT DATE: 20250606
